FAERS Safety Report 15177932 (Version 2)
Quarter: 2018Q3

REPORT INFORMATION
  Report Type: Spontaneous
  Country: GB (occurrence: GB)
  Receive Date: 20180720
  Receipt Date: 20180815
  Transmission Date: 20181010
  Serious: Yes (Hospitalization)
  Sender: FDA-Public Use
  Company Number: GB-AMGEN-GBRSP2018098239

PATIENT
  Age: 72 Year
  Sex: Male
  Weight: 74.1 kg

DRUGS (1)
  1. CARFILZOMIB [Suspect]
     Active Substance: CARFILZOMIB
     Indication: PLASMA CELL MYELOMA RECURRENT
     Dosage: 102 MG, UNK
     Route: 042
     Dates: start: 20180113, end: 20180613

REACTIONS (4)
  - Hyponatraemia [Recovering/Resolving]
  - Aphasia [Recovered/Resolved]
  - Hemiparesis [Recovered/Resolved]
  - Confusional state [Recovered/Resolved]

NARRATIVE: CASE EVENT DATE: 20180614
